FAERS Safety Report 11057933 (Version 1)
Quarter: 2015Q2

REPORT INFORMATION
  Report Type: Report from Study
  Country: US (occurrence: None)
  Receive Date: 20150406
  Receipt Date: 20150406
  Transmission Date: 20150821
  Serious: Yes (Life-Threatening, Hospitalization)
  Sender: FDA-Public Use
  Company Number: US-145623

PATIENT
  Age: 59 Year
  Sex: Male
  Weight: 95 kg

DRUGS (2)
  1. BOTULISM ANTITOXIN [Suspect]
     Active Substance: BOTULISM ANTITOXIN
     Indication: BOTULISM
     Dosage: INTRAVENOUS (NOT OTHERWISE SPECIFIED)
     Route: 042
     Dates: start: 20150110, end: 20150110
  2. PROPOFOL. [Concomitant]
     Active Substance: PROPOFOL

REACTIONS (11)
  - Deep vein thrombosis [None]
  - Medical device complication [None]
  - Clostridium test positive [None]
  - Pneumonia aspiration [None]
  - Axonal neuropathy [None]
  - Pneumomediastinum [None]
  - Post procedural haemorrhage [None]
  - Pneumothorax traumatic [None]
  - Complication of device insertion [None]
  - Peripheral motor neuropathy [None]
  - Respiratory arrest [None]

NARRATIVE: CASE EVENT DATE: 20150113
